FAERS Safety Report 5086210-1 (Version None)
Quarter: 2006Q3

REPORT INFORMATION
  Report Type: 
  Country: None (occurrence: None)
  Receive Date: 20060818
  Receipt Date: 20060803
  Transmission Date: 20061208
  Serious: Yes (Other)
  Sender: FDA-Public Use
  Company Number: 2006BL004483

PATIENT
  Age: 68 Year
  Sex: Female

DRUGS (8)
  1. PREDNISOLONE SODIUM PHOSPHATE [Suspect]
     Indication: DRUG USE FOR UNKNOWN INDICATION
     Dosage: 3 MILLIGRAMS; DAILY; UNKNOWN
     Dates: start: 19960101
  2. ENBREL [Suspect]
     Indication: RHEUMATOID ARTHRITIS
     Dosage: 25 MILLIGRAMS; TWICE A WEEK; UNKNOWN
     Dates: start: 20040712, end: 20041101
  3. REMICADE [Suspect]
     Indication: RHEUMATOID ARTHRITIS
     Dosage: 3 MILLIGRAMS PER KILOGRAM; WEEKLY; UNKNOWN
     Dates: start: 20020513
  4. ALENDRONATE SODIUM [Concomitant]
  5. DIHYDROCODEINE [Concomitant]
  6. BITARTRATE [Concomitant]
  7. LISINOPRIL [Concomitant]
  8. ZOPICLONE [Concomitant]

REACTIONS (3)
  - BASAL CELL CARCINOMA [None]
  - ECZEMA [None]
  - SKIN GRAFT [None]
